FAERS Safety Report 15094343 (Version 1)
Quarter: 2018Q2

REPORT INFORMATION
  Report Type: Spontaneous
  Country: IT (occurrence: IT)
  Receive Date: 20180630
  Receipt Date: 20180630
  Transmission Date: 20180711
  Serious: Yes (Hospitalization, Other)
  Sender: FDA-Public Use
  Company Number: IT-AUROBINDO-AUR-APL-2017-48577

PATIENT
  Age: 35 Year
  Sex: Female

DRUGS (1)
  1. AMOXICILLIN+CLAVULANIC ACID [Suspect]
     Active Substance: AMOXICILLIN\CLAVULANIC ACID
     Indication: PHARYNGOTONSILLITIS
     Dosage: 1 G, UNK
     Route: 048

REACTIONS (2)
  - Acute generalised exanthematous pustulosis [Recovered/Resolved]
  - Skin hyperpigmentation [Recovered/Resolved with Sequelae]
